FAERS Safety Report 7247516-0 (Version None)
Quarter: 2011Q1

REPORT INFORMATION
  Report Type: 
  Country: None (occurrence: None)
  Receive Date: 20110127
  Receipt Date: 20101215
  Transmission Date: 20110831
  Serious: No
  Sender: FDA-Public Use
  Company Number: US-MYLANLABS-2010S1019096

PATIENT
  Age: 15 Year
  Sex: Male
  Weight: 62.6 kg

DRUGS (7)
  1. DIVALPROEX SODIUM EXTENDED RELEASE [Suspect]
     Route: 048
     Dates: start: 20100614, end: 20101026
  2. DIVALPROEX SODIUM EXTENDED RELEASE [Suspect]
     Indication: MOOD DISORDER DUE TO A GENERAL MEDICAL CONDITION
     Route: 048
     Dates: end: 20101016
  3. DIVALPROEX SODIUM EXTENDED RELEASE [Suspect]
     Route: 048
     Dates: start: 20100614, end: 20101026
  4. LITHIUM [Concomitant]
  5. DIVALPROEX SODIUM EXTENDED RELEASE [Suspect]
     Route: 048
     Dates: start: 20100614, end: 20101026
  6. DIVALPROEX SODIUM EXTENDED RELEASE [Suspect]
     Indication: BIPOLAR DISORDER
     Route: 048
     Dates: end: 20101016
  7. DIVALPROEX SODIUM EXTENDED RELEASE [Suspect]
     Route: 048
     Dates: start: 20100614, end: 20101026

REACTIONS (7)
  - AGITATION [None]
  - ANTICONVULSANT DRUG LEVEL BELOW THERAPEUTIC [None]
  - DRUG INEFFECTIVE [None]
  - DEPRESSED MOOD [None]
  - EDUCATIONAL PROBLEM [None]
  - IRRITABILITY [None]
  - AFFECT LABILITY [None]
